FAERS Safety Report 13746657 (Version 2)
Quarter: 2017Q4

REPORT INFORMATION
  Report Type: Report from Study
  Country: JP (occurrence: JP)
  Receive Date: 20170712
  Receipt Date: 20171101
  Transmission Date: 20180320
  Serious: Yes (Death, Other)
  Sender: FDA-Public Use
  Company Number: JP-BAUSCH-BL-2017-020901

PATIENT
  Age: 81 Year
  Sex: Female

DRUGS (11)
  1. RIFXIMA TABLETS 200 MG [Suspect]
     Active Substance: RIFAXIMIN
     Indication: HYPERAMMONAEMIA
     Route: 048
     Dates: start: 20170306, end: 20170322
  2. PORTOLAC [Concomitant]
     Active Substance: LACTITOL
     Indication: HYPERAMMONAEMIA
     Route: 048
     Dates: start: 20170306, end: 20170321
  3. SOLDEM 3A [Concomitant]
     Active Substance: CARBOHYDRATES\POTASSIUM CHLORIDE\SODIUM CHLORIDE\SODIUM LACTATE
     Indication: FLUID REPLACEMENT
     Route: 042
     Dates: start: 20170306, end: 20170317
  4. GLUCOSE [Concomitant]
     Active Substance: DEXTROSE
     Indication: FLUID REPLACEMENT
     Route: 042
     Dates: start: 20170306, end: 20170306
  5. ALPINY [Concomitant]
     Active Substance: ACETAMINOPHEN
     Indication: PAIN
     Route: 054
     Dates: start: 20170321, end: 20170321
  6. EXFORGE OD [Concomitant]
     Indication: HYPERTENSION
     Route: 048
     Dates: start: 20161123, end: 20170317
  7. LUNESTA [Concomitant]
     Active Substance: ESZOPICLONE
     Indication: INSOMNIA
     Route: 048
     Dates: start: 20170306, end: 20170317
  8. LECICARBON [Concomitant]
     Active Substance: SODIUM BICARBONATE\SODIUM PHOSPHATE, MONOBASIC
     Indication: CONSTIPATION
     Route: 054
     Dates: start: 20170320, end: 20170320
  9. AMINOLEBAN EN [Concomitant]
     Active Substance: UNSPECIFIED INGREDIENT
     Indication: HYPERAMMONAEMIA
     Route: 048
     Dates: start: 20170306, end: 20170319
  10. SOLDEM 3A [Concomitant]
     Active Substance: CARBOHYDRATES\POTASSIUM CHLORIDE\SODIUM CHLORIDE\SODIUM LACTATE
     Route: 042
     Dates: start: 20170318, end: 20170321
  11. AMINOLEBAN [Concomitant]
     Active Substance: AMINO ACIDS
     Indication: HYPERAMMONAEMIA
     Route: 041
     Dates: start: 20170306, end: 20170322

REACTIONS (5)
  - Death [Fatal]
  - Pruritus [Unknown]
  - Restlessness [Not Recovered/Not Resolved]
  - Rash [Unknown]
  - Insomnia [Unknown]

NARRATIVE: CASE EVENT DATE: 20170317
